FAERS Safety Report 9456824 (Version 2)
Quarter: 2014Q1

REPORT INFORMATION
  Report Type: Spontaneous
  Country: US (occurrence: US)
  Receive Date: 20130813
  Receipt Date: 20140128
  Transmission Date: 20141002
  Serious: Yes (Hospitalization, Other)
  Sender: FDA-Public Use
  Company Number: US-B.I. PHARMACEUTICALS,INC./RIDGEFIELD-2013-BI-24032BP

PATIENT
  Age: 69 Year
  Sex: Female
  Weight: 56.7 kg

DRUGS (11)
  1. PRADAXA [Suspect]
     Indication: ATRIAL FIBRILLATION
     Dosage: 150 MG
     Dates: start: 20110404, end: 20110812
  2. PRINIVIL [Concomitant]
     Dosage: 5 MG
  3. CALCIUM CARBONATE [Concomitant]
     Dosage: 500 MG
  4. ELAVIL [Concomitant]
     Dosage: 25 MG
  5. TOPROL XL [Concomitant]
     Dosage: 25 MG
  6. LASIX [Concomitant]
     Dosage: 20 MG
  7. ZOCOR [Concomitant]
     Dosage: 40 MG
  8. ALPHAGAN [Concomitant]
     Route: 031
  9. TRAVATAN [Concomitant]
     Route: 031
  10. KLOR-CON [Concomitant]
     Dosage: 10 MEQ
  11. GLIPIZIDE XL [Concomitant]
     Dosage: 10 MG

REACTIONS (5)
  - Upper gastrointestinal haemorrhage [Recovered/Resolved]
  - Haematemesis [Unknown]
  - Anaemia [Unknown]
  - Acute myocardial infarction [Recovered/Resolved]
  - Coagulopathy [Unknown]
